FAERS Safety Report 8210576-4 (Version None)
Quarter: 2012Q1

REPORT INFORMATION
  Report Type: 
  Country: None (occurrence: None)
  Receive Date: 20120314
  Receipt Date: 20110221
  Transmission Date: 20120608
  Serious: No
  Sender: FDA-Public Use
  Company Number: US-ASTRAZENECA-2010SE58912

PATIENT
  Sex: Male

DRUGS (6)
  1. METOPROLOL SUCCINATE [Suspect]
     Indication: VENTRICULAR EXTRASYSTOLES
     Route: 048
     Dates: start: 20100830
  2. TOPROL-XL [Suspect]
     Indication: VENTRICULAR EXTRASYSTOLES
     Route: 048
     Dates: start: 20050101
  3. TOPROL-XL [Suspect]
     Route: 048
  4. TOPROL-XL [Suspect]
     Route: 048
  5. TOPROL-XL [Suspect]
     Indication: TACHYCARDIA
     Route: 048
     Dates: start: 20050101
  6. METOPROLOL SUCCINATE [Suspect]
     Indication: TACHYCARDIA
     Route: 048
     Dates: start: 20100830

REACTIONS (3)
  - TACHYCARDIA [None]
  - VENTRICULAR EXTRASYSTOLES [None]
  - DRUG INEFFECTIVE [None]
